FAERS Safety Report 12599692 (Version 1)
Quarter: 2016Q3

REPORT INFORMATION
  Report Type: Spontaneous
  Country: US (occurrence: US)
  Receive Date: 20160727
  Receipt Date: 20160727
  Transmission Date: 20161109
  Serious: Yes (Hospitalization, Other)
  Sender: FDA-Public Use
  Company Number: US-SA-2015SA179792

PATIENT
  Age: 88 Year
  Sex: Female

DRUGS (2)
  1. AMBRISENTAN [Suspect]
     Active Substance: AMBRISENTAN
     Route: 065
     Dates: start: 20120716
  2. AMBIEN [Suspect]
     Active Substance: ZOLPIDEM TARTRATE
     Route: 065

REACTIONS (1)
  - Fall [Unknown]
